FAERS Safety Report 13676649 (Version 3)
Quarter: 2017Q3

REPORT INFORMATION
  Report Type: Spontaneous
  Country: US (occurrence: US)
  Receive Date: 20170622
  Receipt Date: 20170829
  Transmission Date: 20171127
  Serious: Yes (Other)
  Sender: FDA-Public Use
  Company Number: US-PFIZER INC-2017266624

PATIENT
  Age: 60 Year
  Sex: Female
  Weight: 108 kg

DRUGS (3)
  1. ARIMIDEX [Suspect]
     Active Substance: ANASTROZOLE
     Indication: BREAST CANCER
     Dosage: 1 MG, DAILY
  2. IBRANCE [Suspect]
     Active Substance: PALBOCICLIB
     Indication: BREAST CANCER
     Dosage: 125 MG, CYCLIC (ONCE A DAY FOR 21 DAYS AND 7 DAYS OFF)
     Route: 048
     Dates: start: 2017
  3. LEVOTHYROXINE. [Concomitant]
     Active Substance: LEVOTHYROXINE
     Indication: HYPOTHYROIDISM
     Dosage: 200 UG, DAILY (50 MCG TABLET, TAKES 4 A DAY)
     Dates: start: 1990

REACTIONS (26)
  - Mean platelet volume decreased [Recovering/Resolving]
  - Drug dose omission [Unknown]
  - Haematocrit decreased [Not Recovered/Not Resolved]
  - Back pain [Unknown]
  - Joint stiffness [Unknown]
  - Myalgia [Unknown]
  - Oedema peripheral [Unknown]
  - Burning sensation [Unknown]
  - Platelet count decreased [Not Recovered/Not Resolved]
  - Body surface area increased [Not Recovered/Not Resolved]
  - White blood cell count decreased [Not Recovered/Not Resolved]
  - Red blood cell count decreased [Not Recovered/Not Resolved]
  - Arthralgia [Unknown]
  - Constipation [Unknown]
  - Red cell distribution width increased [Not Recovered/Not Resolved]
  - Neutrophil count decreased [Not Recovered/Not Resolved]
  - Weight increased [Unknown]
  - Haemoglobin decreased [Not Recovered/Not Resolved]
  - Rhinorrhoea [Unknown]
  - Dry mouth [Unknown]
  - Pain [Unknown]
  - Fatigue [Unknown]
  - Nausea [Unknown]
  - Dyspnoea exertional [Unknown]
  - Contusion [Unknown]
  - Mean cell volume increased [Not Recovered/Not Resolved]

NARRATIVE: CASE EVENT DATE: 2017
